FAERS Safety Report 24345204 (Version 5)
Quarter: 2024Q4

REPORT INFORMATION
  Report Type: Spontaneous
  Country: FR (occurrence: FR)
  Receive Date: 20240920
  Receipt Date: 20241203
  Transmission Date: 20250115
  Serious: Yes (Hospitalization, Disabling)
  Sender: SANOFI AVENTIS
  Company Number: FR-SA-2024SA270501

PATIENT
  Age: 38 Year
  Sex: Female
  Weight: 64 kg

DRUGS (6)
  1. DUPIXENT [Suspect]
     Active Substance: DUPILUMAB
     Indication: Asthma
     Dosage: UNK
     Dates: start: 2022, end: 2023
  2. DUPIXENT [Suspect]
     Active Substance: DUPILUMAB
     Dosage: 300 MG, BIM
     Route: 058
     Dates: start: 202307, end: 20240902
  3. AZITHROMYCIN [Concomitant]
     Active Substance: AZITHROMYCIN
  4. BRICANYL [Concomitant]
     Active Substance: TERBUTALINE SULFATE
  5. SYMBICORT [Concomitant]
     Active Substance: BUDESONIDE\FORMOTEROL FUMARATE DIHYDRATE
  6. SPIRIVA [Concomitant]
     Active Substance: TIOTROPIUM BROMIDE MONOHYDRATE

REACTIONS (18)
  - Myopathy [Not Recovered/Not Resolved]
  - Odynophagia [Not Recovered/Not Resolved]
  - Pharyngitis [Not Recovered/Not Resolved]
  - Small fibre neuropathy [Unknown]
  - Neuralgia [Recovering/Resolving]
  - Arthralgia [Unknown]
  - Dysphagia [Unknown]
  - Oropharyngeal pain [Unknown]
  - Myalgia [Recovered/Resolved]
  - C-reactive protein increased [Unknown]
  - Gastritis [Unknown]
  - Blood magnesium decreased [Recovered/Resolved]
  - Muscle spasms [Unknown]
  - Muscular weakness [Recovered/Resolved]
  - Palpitations [Recovered/Resolved]
  - Vasculitis [Recovered/Resolved]
  - Abdominal pain upper [Recovered/Resolved]
  - Decreased appetite [Recovered/Resolved]

NARRATIVE: CASE EVENT DATE: 20240101
